FAERS Safety Report 8431063-4 (Version None)
Quarter: 2012Q2

REPORT INFORMATION
  Report Type: 
  Country: None (occurrence: None)
  Receive Date: 20120612
  Receipt Date: 20120604
  Transmission Date: 20120825
  Serious: Yes (Hospitalization)
  Sender: FDA-Public Use
  Company Number: US-ABBOTT-12P-163-0942670-00

PATIENT
  Sex: Female
  Weight: 80.358 kg

DRUGS (8)
  1. HUMIRA [Suspect]
     Indication: CROHN'S DISEASE
     Route: 058
     Dates: start: 20111001, end: 20120501
  2. COD LIVER OIL [Concomitant]
     Indication: PRODUCT USED FOR UNKNOWN INDICATION
  3. SULFASALAZINE [Concomitant]
     Indication: CROHN'S DISEASE
  4. CALCIUM PLUS VITAMIN D [Concomitant]
     Indication: PRODUCT USED FOR UNKNOWN INDICATION
  5. MULTI-VITAMIN [Concomitant]
     Indication: PRODUCT USED FOR UNKNOWN INDICATION
  6. IMURAN [Concomitant]
     Indication: PRODUCT USED FOR UNKNOWN INDICATION
  7. SULFASALAZINE [Concomitant]
     Indication: PSORIASIS
  8. FLAXSEED OIL [Concomitant]
     Indication: PRODUCT USED FOR UNKNOWN INDICATION

REACTIONS (11)
  - WEIGHT DECREASED [None]
  - LARGE INTESTINE PERFORATION [None]
  - COUGH [None]
  - INTESTINAL OBSTRUCTION [None]
  - ASTHENIA [None]
  - GASTROINTESTINAL INFECTION [None]
  - SEPSIS [None]
  - ABDOMINAL PAIN [None]
  - RENAL FAILURE [None]
  - CHEST PAIN [None]
  - PLEURISY [None]
